FAERS Safety Report 9693710 (Version 1)
Quarter: 2013Q4

REPORT INFORMATION
  Report Type: Spontaneous
  Country: AU (occurrence: AU)
  Receive Date: 20131118
  Receipt Date: 20131118
  Transmission Date: 20140711
  Serious: Yes (Other)
  Sender: FDA-Public Use
  Company Number: AU-ABBVIE-13P-008-1157477-00

PATIENT
  Age: 67 Year
  Sex: Male

DRUGS (8)
  1. VALPROATE SODIUM [Suspect]
     Indication: PRODUCT USED FOR UNKNOWN INDICATION
  2. PANADEINE FORTE [Suspect]
     Indication: PRODUCT USED FOR UNKNOWN INDICATION
  3. IRBESARTAN [Suspect]
     Indication: PRODUCT USED FOR UNKNOWN INDICATION
  4. CARBAMAZEPINE [Suspect]
     Indication: PRODUCT USED FOR UNKNOWN INDICATION
  5. DIAZEPAM [Suspect]
     Indication: PRODUCT USED FOR UNKNOWN INDICATION
  6. GEMFIBROZIL [Suspect]
     Indication: PRODUCT USED FOR UNKNOWN INDICATION
  7. PRAVASTATIN SODIUM [Suspect]
     Indication: PRODUCT USED FOR UNKNOWN INDICATION
  8. DICLOFENAC POTASSIUM [Suspect]
     Indication: PRODUCT USED FOR UNKNOWN INDICATION

REACTIONS (8)
  - Renal failure acute [Unknown]
  - Hepatocellular injury [Unknown]
  - Haematemesis [Unknown]
  - Blood creatine phosphokinase increased [Unknown]
  - Gastritis [Unknown]
  - Myositis [Unknown]
  - Hypotension [Unknown]
  - Confusional state [Unknown]
